FAERS Safety Report 11976614 (Version 1)
Quarter: 2016Q1

REPORT INFORMATION
  Report Type: Spontaneous
  Country: US (occurrence: US)
  Receive Date: 20160129
  Receipt Date: 20160129
  Transmission Date: 20160526
  Serious: No
  Sender: FDA-Public Use
  Company Number: US-INVAGEN PHARMACEUTICALS, INC.-1047077

PATIENT
  Age: 81 Year
  Sex: Male

DRUGS (9)
  1. TOCOPHEROL (VITAMIN E) [Concomitant]
  2. AMLODIPINE BESYLATE. [Concomitant]
     Active Substance: AMLODIPINE BESYLATE
  3. GABAPENTIN. [Suspect]
     Active Substance: GABAPENTIN
     Indication: PARAESTHESIA
     Route: 048
  4. CALCIUM CARBONATE. [Concomitant]
     Active Substance: CALCIUM CARBONATE
  5. ATENOLOL. [Concomitant]
     Active Substance: ATENOLOL
  6. ASCORBIC ACID. [Concomitant]
     Active Substance: ASCORBIC ACID
  7. PRAVASTATIN [Concomitant]
     Active Substance: PRAVASTATIN\PRAVASTATIN SODIUM
  8. PANTOPRAZOLE [Concomitant]
     Active Substance: PANTOPRAZOLE SODIUM
  9. FOLCAPS OMEGA-3 [Concomitant]
     Active Substance: .ALPHA.-TOCOPHEROL ACETATE\CALCIUM\CALCIUM ASCORBATE\CALCIUM THREONATE\CHOLECALCIFEROL\DOCONEXENT\FERROUS ASPARTO GLYCINATE\FOLIC ACID\ICOSAPENT\IRON\LINOLENIC ACID\PYRIDOXINE HYDROCHLORIDE

REACTIONS (2)
  - Paraesthesia [Unknown]
  - Infection [Unknown]
